FAERS Safety Report 9760245 (Version 1)
Quarter: 2013Q4

REPORT INFORMATION
  Report Type: Spontaneous
  Country: US (occurrence: US)
  Receive Date: 20131216
  Receipt Date: 20131216
  Transmission Date: 20140711
  Serious: No
  Sender: FDA-Public Use
  Company Number: US-GILEAD-2010-0028403

PATIENT
  Sex: Male
  Weight: 108.86 kg

DRUGS (15)
  1. LETAIRIS [Suspect]
     Indication: PULMONARY ARTERIAL HYPERTENSION
     Route: 048
     Dates: start: 20100216
  2. COLCHICINE [Concomitant]
  3. ALLOPURINOL [Concomitant]
  4. FUROSEMIDE [Concomitant]
  5. ZOLPIDEM [Concomitant]
  6. VIAGRA [Concomitant]
  7. DIOVAN [Concomitant]
  8. TEKTURNA [Concomitant]
  9. PRAVASTATIN [Concomitant]
  10. CARVEDILOL [Concomitant]
  11. AMIODARONE [Concomitant]
  12. POTASSIUM CHLORIDE [Concomitant]
  13. FLUOXETINE [Concomitant]
  14. KEFLEX [Concomitant]
  15. ASPIRIN [Concomitant]

REACTIONS (2)
  - Pigmentation disorder [Unknown]
  - Nasal congestion [Unknown]
